FAERS Safety Report 25154307 (Version 2)
Quarter: 2025Q2

REPORT INFORMATION
  Report Type: Report from Study
  Country: CA (occurrence: CA)
  Receive Date: 20250403
  Receipt Date: 20250410
  Transmission Date: 20250717
  Serious: Yes (Other)
  Sender: JOHNSON AND JOHNSON
  Company Number: CA-JNJFOC-20250123951

PATIENT
  Age: 26 Year
  Sex: Female

DRUGS (3)
  1. REMICADE [Suspect]
     Active Substance: INFLIXIMAB
     Indication: Crohn^s disease
     Route: 041
     Dates: start: 20230803
  2. REMICADE [Suspect]
     Active Substance: INFLIXIMAB
     Route: 041
  3. ASACOL [Concomitant]
     Active Substance: MESALAMINE

REACTIONS (7)
  - Localised infection [Recovered/Resolved]
  - Pharyngitis [Recovered/Resolved]
  - Illness [Recovered/Resolved]
  - Wound infection [Recovered/Resolved]
  - Joint injury [Recovered/Resolved]
  - Post procedural infection [Unknown]
  - Influenza [Recovering/Resolving]

NARRATIVE: CASE EVENT DATE: 20250107
